FAERS Safety Report 24027791 (Version 1)
Quarter: 2024Q2

REPORT INFORMATION
  Report Type: Spontaneous
  Country: CN (occurrence: CN)
  Receive Date: 20240628
  Receipt Date: 20240628
  Transmission Date: 20240716
  Serious: Yes (Hospitalization, Other)
  Sender: FDA-Public Use
  Company Number: None

PATIENT
  Age: 50 Year
  Sex: Male

DRUGS (8)
  1. IFOSFAMIDE [Suspect]
     Active Substance: IFOSFAMIDE
     Indication: Malignant lymphoid neoplasm
     Dosage: 1 G, ONE TIME IN ONE DAY, D1-D2
     Route: 041
     Dates: start: 20231226, end: 20231227
  2. IFOSFAMIDE [Suspect]
     Active Substance: IFOSFAMIDE
     Indication: Lymphoma
  3. MESNA [Suspect]
     Active Substance: MESNA
     Indication: Malignant lymphoid neoplasm
     Dosage: 0.4 G, THREE TIMES IN ONE DAY, D1-D2
     Route: 042
     Dates: start: 20231226, end: 20231227
  4. MESNA [Suspect]
     Active Substance: MESNA
     Indication: Lymphoma
  5. ETOPOSIDE [Suspect]
     Active Substance: ETOPOSIDE
     Indication: Malignant lymphoid neoplasm
     Dosage: 0.15 G, ONE TIME IN ONE DAY, D1-D3
     Route: 041
     Dates: start: 20231226, end: 20231228
  6. ETOPOSIDE [Suspect]
     Active Substance: ETOPOSIDE
     Indication: Lymphoma
  7. CARBOPLATIN [Suspect]
     Active Substance: CARBOPLATIN
     Indication: Malignant lymphoid neoplasm
     Dosage: 200 MG, ONE TIME IN ONE DAY, D2
     Route: 041
     Dates: start: 20231227, end: 20231227
  8. CARBOPLATIN [Suspect]
     Active Substance: CARBOPLATIN
     Indication: Lymphoma

REACTIONS (1)
  - Myelosuppression [Recovering/Resolving]

NARRATIVE: CASE EVENT DATE: 20240109
